FAERS Safety Report 8370216-0 (Version None)
Quarter: 2012Q2

REPORT INFORMATION
  Report Type: 
  Country: None (occurrence: None)
  Receive Date: 20120518
  Receipt Date: 20120509
  Transmission Date: 20120825
  Serious: Yes (Other)
  Sender: FDA-Public Use
  Company Number: US-ELI_LILLY_AND_COMPANY-US201202005080

PATIENT
  Sex: Female

DRUGS (2)
  1. TREPROSTINIL [Concomitant]
     Dosage: 1 DF, UNK
     Route: 055
  2. ADCIRCA [Suspect]
     Dosage: UNK

REACTIONS (1)
  - THROMBOCYTOPENIA [None]
